FAERS Safety Report 14444939 (Version 3)
Quarter: 2020Q1

REPORT INFORMATION
  Report Type: Spontaneous
  Country: BR (occurrence: BR)
  Receive Date: 20180126
  Receipt Date: 20200309
  Transmission Date: 20200409
  Serious: Yes (Death, Hospitalization, Other)
  Sender: FDA-Public Use
  Company Number: BR-AMGEN-BRASP2018010414

PATIENT
  Age: 76 Year
  Sex: Male

DRUGS (2)
  1. ENBREL [Suspect]
     Active Substance: ETANERCEPT
     Dosage: UNK, WEEKLY
     Route: 065
     Dates: end: 201908
  2. ENBREL [Suspect]
     Active Substance: ETANERCEPT
     Indication: PRODUCT USED FOR UNKNOWN INDICATION
     Dosage: UNK
     Route: 065
     Dates: end: 201712

REACTIONS (2)
  - Dementia Alzheimer^s type [Unknown]
  - Death [Fatal]

NARRATIVE: CASE EVENT DATE: 2017
